FAERS Safety Report 4327096-X (Version None)
Quarter: 2004Q1

REPORT INFORMATION
  Report Type: 
  Country: None (occurrence: None)
  Receive Date: 20040330
  Receipt Date: 20040310
  Transmission Date: 20041129
  Serious: Yes (Hospitalization, Other)
  Sender: FDA-Public Use
  Company Number: PHBS2004JP03402

PATIENT
  Age: 70 Year
  Sex: Female

DRUGS (10)
  1. CARBAMAZEPINE [Suspect]
     Indication: TEMPORAL LOBE EPILEPSY
     Dosage: 400 MG/DAY
     Route: 048
     Dates: start: 19780101, end: 20030201
  2. PREDNISOLONE [Suspect]
     Indication: POLYMYALGIA RHEUMATICA
     Dosage: 30 MG/DAY
     Route: 048
     Dates: start: 20020401
  3. PREDNISOLONE [Suspect]
     Dosage: 50 MG/DAY
     Route: 048
  4. PREDNISOLONE [Suspect]
     Dosage: 20 MG/DAY
     Route: 048
  5. PREDNISOLONE [Suspect]
     Dosage: 60 MG/DAY
     Route: 048
  6. PREDNISOLONE [Suspect]
     Dosage: 30 MG/DAY
     Route: 048
  7. PREDNISOLONE [Suspect]
     Dosage: 40 MG/DAY
     Route: 048
  8. PREDNISOLONE [Suspect]
     Dosage: 30 MG/DAY
     Route: 048
     Dates: start: 20021115
  9. VALPROATE SODIUM [Concomitant]
     Indication: TEMPORAL LOBE EPILEPSY
     Route: 048
  10. METHOTREXATE [Concomitant]
     Indication: POLYMYALGIA RHEUMATICA
     Dosage: 2 MG/DAY
     Route: 048
     Dates: start: 20020701, end: 20020101

REACTIONS (8)
  - C-REACTIVE PROTEIN INCREASED [None]
  - DRUG INTERACTION [None]
  - MALAISE [None]
  - NASOPHARYNGITIS [None]
  - PAIN [None]
  - POLYMYALGIA RHEUMATICA [None]
  - THERAPEUTIC RESPONSE DECREASED [None]
  - WHITE BLOOD CELL COUNT INCREASED [None]
